FAERS Safety Report 10124115 (Version 2)
Quarter: 2015Q1

REPORT INFORMATION
  Report Type: Other
  Country: US (occurrence: US)
  Receive Date: 20140427
  Receipt Date: 20150210
  Transmission Date: 20150720
  Serious: Yes (Hospitalization, Other)
  Sender: FDA-Public Use
  Company Number: US-GSKPPD-2014GSK026324

PATIENT
  Age: 55 Year
  Sex: Male

DRUGS (5)
  1. ECOTRIN [Concomitant]
     Active Substance: ASPIRIN
  2. CALAN SR [Concomitant]
     Active Substance: VERAPAMIL HYDROCHLORIDE
  3. MAVIK [Concomitant]
     Active Substance: TRANDOLAPRIL
  4. LASIX [Concomitant]
     Active Substance: FUROSEMIDE
  5. AVANDIA [Suspect]
     Active Substance: ROSIGLITAZONE MALEATE
     Indication: DIABETES MELLITUS
     Dosage: AVANDIA WAS NOT LISTED AMONG THE PATIENTS RECORDS REVIEWED.
     Route: 048

REACTIONS (1)
  - Arteriosclerosis coronary artery [Recovered/Resolved]

NARRATIVE: CASE EVENT DATE: 20020107
